FAERS Safety Report 20393565 (Version 1)
Quarter: 2022Q1

REPORT INFORMATION
  Report Type: Spontaneous
  Country: AU (occurrence: AU)
  Receive Date: 20220128
  Receipt Date: 20220128
  Transmission Date: 20220424
  Serious: Yes (Hospitalization)
  Sender: FDA-Public Use
  Company Number: AU-TEVA-2022-AU-2001426

PATIENT
  Age: 48 Year
  Sex: Female

DRUGS (1)
  1. COPAXONE [Suspect]
     Active Substance: GLATIRAMER ACETATE
     Indication: Multiple sclerosis
     Route: 065

REACTIONS (8)
  - Migraine [Recovered/Resolved]
  - Pyrexia [Unknown]
  - Blood pressure decreased [Unknown]
  - Vomiting [Unknown]
  - Tremor [Unknown]
  - Liver function test increased [Unknown]
  - C-reactive protein increased [Unknown]
  - White blood cell count decreased [Unknown]
